FAERS Safety Report 21888742 (Version 8)
Quarter: 2023Q1

REPORT INFORMATION
  Report Type: Spontaneous
  Country: CA (occurrence: CA)
  Receive Date: 20230120
  Receipt Date: 20230317
  Transmission Date: 20230418
  Serious: Yes (Hospitalization, Other)
  Sender: FDA-Public Use
  Company Number: CA-CELLTRION INC.-2022CA019659

PATIENT

DRUGS (6)
  1. INFLECTRA [Suspect]
     Active Substance: INFLIXIMAB-DYYB
     Indication: Crohn^s disease
     Dosage: 5 MG/KG INDUCTION DOSES AT WEEK 0, 2 AND 6, THEN EVERY 8 WEEKS
     Route: 042
     Dates: start: 20221124
  2. INFLECTRA [Suspect]
     Active Substance: INFLIXIMAB-DYYB
     Dosage: 5 MG/KG INDUCTION DOSES AT WEEK 0, 2 AND 6, THEN EVERY 8 WEEKS
     Route: 042
     Dates: start: 20221214
  3. INFLECTRA [Suspect]
     Active Substance: INFLIXIMAB-DYYB
     Dosage: 375 MG, WEEK 6 DOSE, (5 MG/KG INDUCTION DOSES AT WEEK 0, 2 AND 6, THEN EVERY 8 WEEKS)
     Route: 042
     Dates: start: 20230207
  4. CALCIUM [Concomitant]
     Active Substance: CALCIUM
     Dosage: 500 MG, 1X/DAY
     Route: 048
  5. PANTOPRAZOLE SODIUM [Concomitant]
     Active Substance: PANTOPRAZOLE SODIUM
     Dosage: 40 MG, 1X/DAY
     Route: 048
  6. PREDNISONE [Concomitant]
     Active Substance: PREDNISONE
     Dosage: 15 MG
     Route: 048

REACTIONS (18)
  - Sepsis [Recovered/Resolved]
  - Abdominal pain [Not Recovered/Not Resolved]
  - Hip surgery [Not Recovered/Not Resolved]
  - Off label use [Unknown]
  - Intentional product use issue [Unknown]
  - Gait inability [Unknown]
  - Pus in stool [Not Recovered/Not Resolved]
  - Pain [Recovered/Resolved]
  - Blood pressure fluctuation [Not Recovered/Not Resolved]
  - Condition aggravated [Not Recovered/Not Resolved]
  - Oedema peripheral [Recovered/Resolved]
  - Axillary web syndrome [Not Recovered/Not Resolved]
  - Skin discolouration [Not Recovered/Not Resolved]
  - Peripheral coldness [Not Recovered/Not Resolved]
  - Raynaud^s phenomenon [Not Recovered/Not Resolved]
  - Pain in extremity [Not Recovered/Not Resolved]
  - Hyperaesthesia [Not Recovered/Not Resolved]
  - Lipoma [Not Recovered/Not Resolved]

NARRATIVE: CASE EVENT DATE: 20221201
